FAERS Safety Report 21021887 (Version 1)
Quarter: 2022Q2

REPORT INFORMATION
  Report Type: Spontaneous
  Country: US (occurrence: None)
  Receive Date: 20220628
  Receipt Date: 20220628
  Transmission Date: 20220721
  Serious: No
  Sender: FDA-Public Use
  Company Number: None

PATIENT
  Sex: Female

DRUGS (1)
  1. NINLARO [Suspect]
     Active Substance: IXAZOMIB CITRATE
     Indication: Plasma cell myeloma
     Dosage: OTHER FREQUENCY : ONDAYS 1,8AND15;?
     Route: 048
     Dates: start: 20211014

REACTIONS (5)
  - Pruritus [None]
  - Alopecia [None]
  - Trichorrhexis [None]
  - Gastric disorder [None]
  - Respiratory tract infection [None]
